FAERS Safety Report 6330435-1 (Version None)
Quarter: 2009Q3

REPORT INFORMATION
  Report Type: 
  Country: None (occurrence: None)
  Receive Date: 20090826
  Receipt Date: 20090826
  Transmission Date: 20100115
  Serious: Yes (Other)
  Sender: FDA-Public Use
  Company Number: None

PATIENT
  Age: 49 Year
  Sex: Female
  Weight: 73.4827 kg

DRUGS (2)
  1. OXYBUTYNIN 5MG HEARTBURN [Suspect]
     Dosage: ONE DAILY
  2. VESICARE [Suspect]
     Dosage: ONE DAILY

REACTIONS (2)
  - DRUG INEFFECTIVE [None]
  - DYSPEPSIA [None]
